FAERS Safety Report 7469383-2 (Version None)
Quarter: 2011Q2

REPORT INFORMATION
  Report Type: 
  Country: None (occurrence: None)
  Receive Date: 20110429
  Receipt Date: 20110311
  Transmission Date: 20111010
  Serious: Yes (Hospitalization)
  Sender: FDA-Public Use
  Company Number: IDA-00521

PATIENT
  Age: 37 Year
  Sex: Female

DRUGS (5)
  1. SEROQUEL [Suspect]
     Dosage: DAILY,TABLET, ORAL
     Route: 048
  2. PROPRANOLOL [Suspect]
     Dosage: DAILY
  3. KEPPRA [Suspect]
     Dosage: DAILY
  4. CITRALINE (CITRULLINE) [Suspect]
     Dosage: DAILY
  5. ALCOHOL (ETHANOL) [Suspect]
     Dosage: DAILY

REACTIONS (2)
  - ELECTROCARDIOGRAM QT PROLONGED [None]
  - MULTIPLE DRUG OVERDOSE [None]
